FAERS Safety Report 14695414 (Version 1)
Quarter: 2018Q1

REPORT INFORMATION
  Report Type: Spontaneous
  Country: US (occurrence: US)
  Receive Date: 20180329
  Receipt Date: 20180329
  Transmission Date: 20180509
  Serious: Yes (Hospitalization, Other)
  Sender: FDA-Public Use
  Company Number: US-TEVA-2018-US-874876

PATIENT
  Age: 58 Year
  Sex: Male

DRUGS (5)
  1. GENTAMICIN. [Suspect]
     Active Substance: GENTAMICIN
     Indication: HIP SURGERY
     Dosage: 0.5G; ANTIBIOTIC IMPREGNATED POLYMETHYLMETHACRYLATE SPACER (PROSTALAC)
     Route: 065
  2. VANCOMYCIN [Suspect]
     Active Substance: VANCOMYCIN
     Indication: SEPSIS
     Dosage: 3G; ANTIBIOTIC IMPREGNATED POLYMETHYLMETHACRYLATE SPACER (PROSTALAC)
     Route: 065
  3. PIPERACILLIN AND TAZOBACTAM [Concomitant]
     Active Substance: PIPERACILLIN SODIUM\TAZOBACTAM SODIUM
     Indication: ESCHERICHIA INFECTION
     Route: 065
  4. TOBRAMYCIN. [Suspect]
     Active Substance: TOBRAMYCIN
     Indication: HIP SURGERY
     Dosage: 3.6G; ANTIBIOTIC IMPREGNATED POLYMETHYLMETHACRYLATE SPACER (PROSTALAC)
     Route: 065
  5. VANCOMYCIN [Suspect]
     Active Substance: VANCOMYCIN
     Indication: HIP SURGERY
     Route: 065

REACTIONS (3)
  - Renal tubular necrosis [Recovering/Resolving]
  - Tubulointerstitial nephritis [Recovering/Resolving]
  - Acute kidney injury [Recovering/Resolving]
